FAERS Safety Report 9922558 (Version 2)
Quarter: 2014Q1

REPORT INFORMATION
  Report Type: Report from Study
  Country: BE (occurrence: BE)
  Receive Date: 20140225
  Receipt Date: 20140225
  Transmission Date: 20141002
  Serious: Yes (Death, Hospitalization)
  Sender: FDA-Public Use
  Company Number: BE-BAYER-2014-009760

PATIENT
  Age: 65 Year
  Sex: Female
  Weight: 39.3 kg

DRUGS (29)
  1. MEK INHIBITOR (DIHYDROXYPROP-DIFLU-METHOXYPHEN-CYCLOPROPA-SULFAMI) [Suspect]
     Indication: HEPATOCELLULAR CARCINOMA
     Dosage: (50MG X 2) X 4.5 DAYS
     Route: 048
     Dates: start: 20140113, end: 20140117
  2. MEK INHIBITOR (DIHYDROXYPROP-DIFLU-METHOXYPHEN-CYCLOPROPA-SULFAMI) [Suspect]
     Indication: HEPATOCELLULAR CARCINOMA
     Dosage: 30 MG X 2
     Route: 048
     Dates: start: 20140121, end: 20140129
  3. SORAFENIB (RAF KINASE INHIBITOR) [Suspect]
     Indication: HEPATOCELLULAR CARCINOMA
     Dosage: (200 MG X 3) X 4,5 DAYS
     Route: 048
     Dates: start: 20140113, end: 20140117
  4. SORAFENIB (RAF KINASE INHIBITOR) [Suspect]
     Indication: HEPATOCELLULAR CARCINOMA
     Dosage: 400 MG X 1
     Route: 048
     Dates: start: 20140121, end: 20140129
  5. DUROGESIC [Concomitant]
     Indication: CANCER PAIN
     Dosage: UNK
     Route: 062
     Dates: start: 20130801, end: 20131227
  6. DUROGESIC [Concomitant]
     Indication: CANCER PAIN
     Dosage: 50 MICROG/72H
     Dates: start: 20131227, end: 20140103
  7. DUROGESIC [Concomitant]
     Indication: CANCER PAIN
     Dosage: UNK
     Dates: start: 20140103
  8. OXYNORM [Concomitant]
     Indication: CANCER PAIN
     Dosage: 10 MG, PRN
     Route: 048
     Dates: start: 20130801
  9. OXYNORM [Concomitant]
     Indication: CANCER PAIN
     Dosage: UNK, PRN
     Route: 048
     Dates: start: 20131227, end: 20140116
  10. OXYNORM [Concomitant]
     Indication: CANCER PAIN
     Dosage: 20 MG 5X/DAY
     Route: 048
     Dates: start: 20140117, end: 20140210
  11. PANTORC [Concomitant]
     Indication: BARRETT^S OESOPHAGUS
     Dosage: 40 MG, QD
     Route: 048
     Dates: start: 20131001
  12. SERENADE [Concomitant]
     Indication: INSOMNIA
     Dosage: 2.5 MG, QD
     Route: 048
     Dates: start: 2003, end: 20140117
  13. DURALGIN [Concomitant]
     Indication: PAIN
     Dosage: 1 G, PRN
     Route: 048
     Dates: start: 20130701
  14. L-THYROXIN [Concomitant]
     Indication: THYROID DISORDER
     Dosage: 0.05 MG, QD
     Route: 048
     Dates: start: 20140103, end: 20140214
  15. DAFALGAN [Concomitant]
     Indication: PAIN
     Dosage: UNK
     Dates: start: 20130801, end: 20140214
  16. ARANESP [Concomitant]
     Indication: ANAEMIA
     Dosage: UNK
     Dates: start: 20140128, end: 20140128
  17. HALDOL [Concomitant]
     Indication: CONFUSIONAL STATE
     Dosage: UNK UNK, PRN
     Route: 048
     Dates: start: 20140131, end: 20140214
  18. MS CONTIN [Concomitant]
     Indication: LIFE SUPPORT
     Dosage: UNK
     Route: 042
     Dates: start: 20140210, end: 20140214
  19. NOVALGINE [Concomitant]
     Indication: PAIN
     Dosage: DROP
     Dates: start: 20140210, end: 20140218
  20. MORPHIN [Concomitant]
     Indication: LIFE SUPPORT
     Dosage: DAILY DOSE 20 MG
     Route: 042
     Dates: start: 20140211, end: 20140214
  21. MORPHIN [Concomitant]
     Indication: LIFE SUPPORT
     Dosage: DAILY DOSE 50 MG
     Route: 042
     Dates: start: 20140215, end: 20140215
  22. MORPHIN [Concomitant]
     Indication: LIFE SUPPORT
     Dosage: DAILY DOSE 70 MG
     Route: 042
     Dates: start: 20140215, end: 20140217
  23. MORPHIN [Concomitant]
     Indication: LIFE SUPPORT
     Dosage: DAILY DOSE 500 MG
     Route: 042
     Dates: start: 20140218, end: 20140218
  24. TRANXEN [Concomitant]
     Indication: LIFE SUPPORT
     Dosage: DAILY DOSE 100 MG
     Route: 042
     Dates: start: 20140218, end: 20140218
  25. LORAMET [Concomitant]
     Indication: INSOMNIA
     Dosage: UNK
     Dates: start: 20131228, end: 20140102
  26. LORAMET [Concomitant]
     Indication: INSOMNIA
     Dosage: 2 MG, QD
     Route: 048
     Dates: start: 20140117, end: 20140214
  27. DULCOLAX [BISACODYL] [Concomitant]
     Indication: CONSTIPATION PROPHYLAXIS
  28. GLYCERIN [Concomitant]
     Indication: GASTROINTESTINAL MOTILITY DISORDER
     Dosage: UNK
     Dates: start: 20140126, end: 20140126
  29. MOVICOL [Concomitant]
     Indication: GASTROINTESTINAL MOTILITY DISORDER

REACTIONS (1)
  - General physical health deterioration [Fatal]
